FAERS Safety Report 5627798-9 (Version None)
Quarter: 2008Q1

REPORT INFORMATION
  Report Type: 
  Country: None (occurrence: None)
  Receive Date: 20080215
  Receipt Date: 20080211
  Transmission Date: 20080703
  Serious: Yes (Other)
  Sender: FDA-Public Use
  Company Number: B0508034A

PATIENT
  Age: 29 Year
  Sex: Male

DRUGS (5)
  1. CLAMOXYL [Suspect]
     Indication: DRUG USE FOR UNKNOWN INDICATION
     Route: 048
     Dates: start: 20070401, end: 20070401
  2. DEROXAT [Concomitant]
     Indication: DEPRESSION
  3. NOZINAN [Concomitant]
     Indication: DEPRESSION
  4. HAVLANE [Concomitant]
     Indication: DEPRESSION
  5. XANAX [Concomitant]
     Indication: DEPRESSION

REACTIONS (5)
  - ANAPHYLACTIC REACTION [None]
  - LOSS OF CONSCIOUSNESS [None]
  - MALAISE [None]
  - PRURITUS GENERALISED [None]
  - RASH [None]
